FAERS Safety Report 5488335-5 (Version None)
Quarter: 2007Q4

REPORT INFORMATION
  Report Type: 
  Country: None (occurrence: None)
  Receive Date: 20071017
  Receipt Date: 20071015
  Transmission Date: 20080405
  Serious: Yes (Other)
  Sender: FDA-Public Use
  Company Number: A0687716A

PATIENT
  Age: 66 Year
  Sex: Female

DRUGS (9)
  1. ADVAIR DISKUS 100/50 [Suspect]
     Indication: ASTHMA
     Dosage: 1PUFF TWICE PER DAY
     Route: 055
     Dates: start: 20070301
  2. THYROID TAB [Concomitant]
  3. ACTONEL [Concomitant]
  4. NASONEX [Concomitant]
  5. CELEBREX [Concomitant]
  6. HORMONE REPLACEMENT [Concomitant]
  7. SIMVASTATIN [Concomitant]
  8. SINGULAIR [Concomitant]
  9. CLARITIN-D [Concomitant]

REACTIONS (4)
  - BONE DISORDER [None]
  - DYSPHONIA [None]
  - MOUTH ULCERATION [None]
  - NEOPLASM MALIGNANT [None]
